FAERS Safety Report 12106471 (Version 1)
Quarter: 2016Q1

REPORT INFORMATION
  Report Type: Spontaneous
  Country: IR (occurrence: IR)
  Receive Date: 20160223
  Receipt Date: 20160223
  Transmission Date: 20160526
  Serious: Yes (Hospitalization)
  Sender: FDA-Public Use
  Company Number: IR-EAGLE PHARMACEUTICALS, INC.-ELL201505-000116

PATIENT
  Age: 39 Year
  Sex: Female

DRUGS (3)
  1. GLIBENCLAMIDE [Concomitant]
     Active Substance: GLYBURIDE
     Indication: TYPE 2 DIABETES MELLITUS
     Route: 048
  2. METFORMIN [Concomitant]
     Active Substance: METFORMIN HYDROCHLORIDE
     Indication: TYPE 2 DIABETES MELLITUS
  3. DICLOFENAC SODIUM AND MISOPROSTOL [Suspect]
     Active Substance: DICLOFENAC SODIUM\MISOPROSTOL
     Route: 030

REACTIONS (4)
  - Necrotising fasciitis [Recovered/Resolved]
  - Drug ineffective [Unknown]
  - Emphysematous pyelonephritis [Recovered/Resolved]
  - Hydronephrosis [None]
